FAERS Safety Report 19284062 (Version 1)
Quarter: 2021Q2

REPORT INFORMATION
  Report Type: Report from Study
  Country: RU (occurrence: RU)
  Receive Date: 20210521
  Receipt Date: 20210521
  Transmission Date: 20210717
  Serious: Yes (Other)
  Sender: FDA-Public Use
  Company Number: NVSC2021RU107612

PATIENT
  Age: 73 Year
  Sex: Female

DRUGS (3)
  1. DABRAFENIB [Suspect]
     Active Substance: DABRAFENIB
     Indication: METASTATIC MALIGNANT MELANOMA
     Dosage: 150 MG, QD,
     Route: 065
     Dates: start: 20181205
  2. DABRAFENIB [Suspect]
     Active Substance: DABRAFENIB
     Dosage: 75 MG, BID
     Route: 065
  3. TRAMETINIB [Suspect]
     Active Substance: TRAMETINIB
     Indication: METASTATIC MALIGNANT MELANOMA
     Dosage: 2 MG, QD
     Route: 065

REACTIONS (4)
  - Hypertensive crisis [Unknown]
  - Skin toxicity [Unknown]
  - Hyperthermia [Unknown]
  - Tachycardia paroxysmal [Recovered/Resolved]

NARRATIVE: CASE EVENT DATE: 20181228
